FAERS Safety Report 8170212-2 (Version None)
Quarter: 2012Q1

REPORT INFORMATION
  Report Type: 
  Country: None (occurrence: None)
  Receive Date: 20120228
  Receipt Date: 20120217
  Transmission Date: 20120608
  Serious: No
  Sender: FDA-Public Use
  Company Number: US-JNJFOC-20120209412

PATIENT
  Sex: Male
  Weight: 140.62 kg

DRUGS (11)
  1. WARFARIN SODIUM [Concomitant]
     Indication: THROMBOSIS PROPHYLAXIS
     Route: 048
     Dates: start: 20070101
  2. DURAGESIC-100 [Suspect]
     Indication: PAIN MANAGEMENT
     Route: 062
     Dates: start: 20110801, end: 20111101
  3. DURAGESIC-100 [Suspect]
     Route: 062
     Dates: start: 20120105, end: 20120215
  4. DURAGESIC-100 [Suspect]
     Route: 062
     Dates: start: 20120215
  5. DURAGESIC-100 [Suspect]
     Route: 062
     Dates: start: 20110101, end: 20111220
  6. DILTIAZEM HCL [Concomitant]
     Indication: PRODUCT USED FOR UNKNOWN INDICATION
     Route: 048
     Dates: start: 20100101
  7. DURAGESIC-100 [Suspect]
     Route: 062
     Dates: start: 20111101, end: 20110101
  8. HYDROCHLOROTHIAZIDE [Concomitant]
     Indication: BLOOD PRESSURE
     Route: 048
     Dates: start: 20110101
  9. MORPHINE [Concomitant]
     Indication: BREAKTHROUGH PAIN
     Route: 048
  10. DURAGESIC-100 [Suspect]
     Route: 062
     Dates: start: 20110701, end: 20110801
  11. HYDROCHLOROTHIAZIDE [Concomitant]
     Indication: DIURETIC THERAPY
     Route: 048
     Dates: start: 20110101

REACTIONS (4)
  - WRONG TECHNIQUE IN DRUG USAGE PROCESS [None]
  - DRUG EFFECT DECREASED [None]
  - HYPERHIDROSIS [None]
  - PRODUCT QUALITY ISSUE [None]
